FAERS Safety Report 12872443 (Version 1)
Quarter: 2016Q4

REPORT INFORMATION
  Report Type: Spontaneous
  Country: None (occurrence: TR)
  Receive Date: 20161021
  Receipt Date: 20161021
  Transmission Date: 20170207
  Serious: Yes (Hospitalization)
  Sender: FDA-Public Use
  Company Number: TR-BIOVITRUM-2016TR0829

PATIENT
  Age: 10 Year
  Sex: Male

DRUGS (1)
  1. ANAKINRA [Suspect]
     Active Substance: ANAKINRA
     Indication: HYPER IGD SYNDROME

REACTIONS (4)
  - Acute disseminated encephalomyelitis [Unknown]
  - Diarrhoea [Recovered/Resolved]
  - Transplant dysfunction [Unknown]
  - Weight decreased [Unknown]
